FAERS Safety Report 11813596 (Version 1)
Quarter: 2015Q4

REPORT INFORMATION
  Report Type: Spontaneous
  Country: US (occurrence: None)
  Receive Date: 20151208
  Receipt Date: 20151208
  Transmission Date: 20160305
  Serious: Yes (Life-Threatening, Hospitalization, Other)
  Sender: FDA-Public Use
  Company Number: None

PATIENT
  Age: 23 Year
  Sex: Male
  Weight: 80 kg

DRUGS (1)
  1. LOPERAMIDE 2 MG UNKNOWN [Suspect]
     Active Substance: LOPERAMIDE
     Indication: DRUG ABUSE

REACTIONS (7)
  - Cardiac arrest [None]
  - Drug abuse [None]
  - Ventricular tachycardia [None]
  - Electrocardiogram QRS complex prolonged [None]
  - Syncope [None]
  - Electrocardiogram QT prolonged [None]
  - Refusal of treatment by patient [None]

NARRATIVE: CASE EVENT DATE: 20151114
